FAERS Safety Report 8209619-3 (Version None)
Quarter: 2012Q1

REPORT INFORMATION
  Report Type: 
  Country: None (occurrence: None)
  Receive Date: 20120314
  Receipt Date: 20120309
  Transmission Date: 20120608
  Serious: Yes (Death, Life-Threatening)
  Sender: FDA-Public Use
  Company Number: GB-ELI_LILLY_AND_COMPANY-GB201104001119

PATIENT
  Age: 65 Year
  Sex: Male

DRUGS (8)
  1. APREPITANT [Concomitant]
     Dosage: UNK
     Dates: start: 20110225, end: 20110225
  2. DALTEPARIN SODIUM [Concomitant]
     Indication: LUNG NEOPLASM MALIGNANT
     Dosage: UNK
     Dates: start: 20101220, end: 20110225
  3. ACETAMINOPHEN [Concomitant]
     Dosage: UNK
     Route: 048
  4. PEMETREXED [Suspect]
     Dosage: UNK
     Route: 042
     Dates: start: 20101221, end: 20110225
  5. DEXAMETHASONE [Concomitant]
     Dosage: UNK
     Route: 048
     Dates: end: 20110225
  6. MS CONTIN [Concomitant]
     Dosage: UNK
     Route: 048
  7. CISPLATIN [Concomitant]
     Dosage: UNK
     Dates: start: 20101221, end: 20110225
  8. ONDANSETRON HCL [Concomitant]
     Dosage: UNK
     Route: 048

REACTIONS (3)
  - LARGE INTESTINE PERFORATION [None]
  - INFECTIOUS PERITONITIS [None]
  - NEOPLASM MALIGNANT [None]
